FAERS Safety Report 7654281-1 (Version None)
Quarter: 2011Q3

REPORT INFORMATION
  Report Type: 
  Country: None (occurrence: None)
  Receive Date: 20110803
  Receipt Date: 20110616
  Transmission Date: 20111222
  Serious: Yes (Hospitalization, Other)
  Sender: FDA-Public Use
  Company Number: PHHY2011NL46688

PATIENT
  Sex: Female

DRUGS (4)
  1. GLEEVEC [Suspect]
     Dosage: 400 MG, DAILY
     Dates: start: 20090101
  2. ASPIRIN [Concomitant]
     Dosage: 100 MG, UNK
  3. GLEEVEC [Suspect]
     Dosage: UNK UKN, UNK
     Dates: end: 20110609
  4. METOPROLOL TARTRATE [Concomitant]
     Dosage: 25 MG, UNK

REACTIONS (6)
  - PYREXIA [None]
  - NAUSEA [None]
  - MALAISE [None]
  - GASTRIC ULCER HELICOBACTER [None]
  - VOMITING [None]
  - BACTERIAL INFECTION [None]
